FAERS Safety Report 12154028 (Version 4)
Quarter: 2016Q3

REPORT INFORMATION
  Report Type: Spontaneous
  Country: US (occurrence: US)
  Receive Date: 20160307
  Receipt Date: 20160720
  Transmission Date: 20161109
  Serious: Yes (Other)
  Sender: FDA-Public Use
  Company Number: US-VIFOR (INTERNATIONAL) INC.-VIT-2016-00752

PATIENT
  Age: 78 Year
  Sex: Female
  Weight: 52.5 kg

DRUGS (3)
  1. VENOFER [Concomitant]
     Active Substance: IRON SUCROSE
     Indication: TRANSFERRIN SATURATION DECREASED
     Route: 040
     Dates: start: 20150921, end: 20150930
  2. HECTOROL [Concomitant]
     Active Substance: DOXERCALCIFEROL
  3. MIRCERA [Suspect]
     Active Substance: METHOXY POLYETHYLENE GLYCOL-EPOETIN BETA
     Indication: HAEMOGLOBIN DECREASED
     Route: 040
     Dates: start: 20150715

REACTIONS (9)
  - Diarrhoea [Recovered/Resolved]
  - Dyspnoea [Recovered/Resolved]
  - Cough [Recovered/Resolved]
  - Respiratory distress [Recovered/Resolved]
  - Nausea [Recovered/Resolved]
  - Skin irritation [Recovered/Resolved]
  - Vomiting [Recovered/Resolved]
  - Pruritus [Recovered/Resolved]
  - Rash [Recovered/Resolved]

NARRATIVE: CASE EVENT DATE: 20150715
